FAERS Safety Report 21697301 (Version 1)
Quarter: 2022Q4

REPORT INFORMATION
  Report Type: Spontaneous
  Country: US (occurrence: US)
  Receive Date: 20221208
  Receipt Date: 20221208
  Transmission Date: 20230113
  Serious: No
  Sender: FDA-Public Use
  Company Number: US-AMGEN-USASP2022198781

PATIENT
  Sex: Female

DRUGS (1)
  1. PROLIA [Suspect]
     Active Substance: DENOSUMAB
     Indication: Off label use
     Dosage: 60 MILLIGRAM, Q6MO
     Route: 058

REACTIONS (10)
  - Lymphadenopathy [Recovering/Resolving]
  - Vaginal infection [Recovering/Resolving]
  - Eye infection [Recovering/Resolving]
  - Inappropriate schedule of product administration [Unknown]
  - Bedridden [Recovering/Resolving]
  - Off label use [Unknown]
  - Pyrexia [Recovering/Resolving]
  - Myalgia [Recovering/Resolving]
  - Fatigue [Recovering/Resolving]
  - Headache [Recovering/Resolving]

NARRATIVE: CASE EVENT DATE: 20220801
